FAERS Safety Report 7620630-3 (Version None)
Quarter: 2011Q3

REPORT INFORMATION
  Report Type: 
  Country: None (occurrence: None)
  Receive Date: 20110719
  Receipt Date: 20110705
  Transmission Date: 20111222
  Serious: Yes (Other)
  Sender: FDA-Public Use
  Company Number: RU-SANOFI-AVENTIS-2011SA044362

PATIENT
  Age: 67 Year
  Sex: Male
  Weight: 71 kg

DRUGS (5)
  1. DIURETICS [Concomitant]
     Route: 065
  2. BISOPROLOL [Concomitant]
     Route: 065
  3. DRONEDARONE HCL [Suspect]
     Indication: ATRIAL FIBRILLATION
     Route: 048
     Dates: start: 20110121
  4. PERINDOPRIL ERBUMINE [Concomitant]
     Route: 065
  5. WARFARIN SODIUM [Concomitant]
     Route: 065

REACTIONS (1)
  - CARDIAC FAILURE [None]
